FAERS Safety Report 6632974-2 (Version None)
Quarter: 2010Q1

REPORT INFORMATION
  Report Type: 
  Country: None (occurrence: None)
  Receive Date: 20100312
  Receipt Date: 20091120
  Transmission Date: 20100710
  Serious: No
  Sender: FDA-Public Use
  Company Number: US-ABBOTT-09P-163-0611012-00

PATIENT
  Sex: Male

DRUGS (1)
  1. ERYTHROMYCIN ETHYLSUCCINATE [Suspect]
     Indication: TOOTH INFECTION
     Dates: end: 20091101

REACTIONS (1)
  - DRUG LABEL CONFUSION [None]
